FAERS Safety Report 6375438-6 (Version None)
Quarter: 2009Q3

REPORT INFORMATION
  Report Type: 
  Country: None (occurrence: None)
  Receive Date: 20090917
  Receipt Date: 20090917
  Transmission Date: 20100115
  Serious: No
  Sender: FDA-Public Use
  Company Number: None

PATIENT
  Age: 65 Year
  Sex: Female

DRUGS (1)
  1. INSULIN DRIP [Suspect]
     Dosage: IV STRIP

REACTIONS (6)
  - DRUG ADMINISTRATION ERROR [None]
  - DRUG DISPENSING ERROR [None]
  - DRUG DOSE OMISSION [None]
  - MEDICATION ERROR [None]
  - PRODUCT LABEL ON WRONG PRODUCT [None]
  - WRONG DRUG ADMINISTERED [None]
